FAERS Safety Report 17547884 (Version 1)
Quarter: 2020Q1

REPORT INFORMATION
  Report Type: Spontaneous
  Country: FR (occurrence: FR)
  Receive Date: 20200316
  Receipt Date: 20200316
  Transmission Date: 20200409
  Serious: Yes (Other)
  Sender: FDA-Public Use
  Company Number: FR-CELLTRION INC.-2020FR018674

PATIENT

DRUGS (3)
  1. CYCLOPHOSPHAMIDE. [Concomitant]
     Active Substance: CYCLOPHOSPHAMIDE
     Dosage: 6 COURSES OF INTRAVENOUS CYCLOPHOSPHAMIDE
     Route: 042
  2. BORTEZOMIB. [Concomitant]
     Active Substance: BORTEZOMIB
     Dosage: 2 INFUSIONS OF BORTEZOMIB
  3. RITUXIMAB (UNKNOWN) [Suspect]
     Active Substance: RITUXIMAB
     Indication: ENCEPHALITIS AUTOIMMUNE
     Dosage: UNK, ON DAYS 15 AND 30

REACTIONS (4)
  - Bradyarrhythmia [Unknown]
  - Ovarian germ cell teratoma [Unknown]
  - Maternal exposure during pregnancy [Unknown]
  - Product use in unapproved indication [Unknown]
